FAERS Safety Report 19794581 (Version 1)
Quarter: 2021Q3

REPORT INFORMATION
  Report Type: Report from Study
  Country: JP (occurrence: JP)
  Receive Date: 20210907
  Receipt Date: 20210907
  Transmission Date: 20211014
  Serious: Yes (Other)
  Sender: FDA-Public Use
  Company Number: JP-TEVA-2021-JP-1949933

PATIENT
  Age: 52 Year
  Sex: Female
  Weight: 65 kg

DRUGS (2)
  1. PRIMAQUINE PHOSPHATE. [Suspect]
     Active Substance: PRIMAQUINE PHOSPHATE
     Indication: PNEUMOCYSTIS JIROVECII PNEUMONIA
     Dosage: 30 MILLIGRAM DAILY;
     Route: 065
  2. CLINDAMYCIN. [Suspect]
     Active Substance: CLINDAMYCIN
     Indication: PNEUMOCYSTIS JIROVECII PNEUMONIA
     Dosage: 1800 MILLIGRAM DAILY;
     Route: 065

REACTIONS (3)
  - Off label use [Unknown]
  - Purpura [Recovering/Resolving]
  - Erythema [Recovering/Resolving]
